FAERS Safety Report 10061403 (Version 3)
Quarter: 2014Q2

REPORT INFORMATION
  Report Type: Spontaneous
  Country: JP (occurrence: JP)
  Receive Date: 20140407
  Receipt Date: 20140502
  Transmission Date: 20141212
  Serious: Yes (Hospitalization)
  Sender: FDA-Public Use
  Company Number: JP-JNJFOC-20140318983

PATIENT
  Age: 44 Year
  Sex: Female
  Weight: 92 kg

DRUGS (19)
  1. INVEGA [Suspect]
     Indication: SCHIZOPHRENIA
     Route: 048
     Dates: end: 20121127
  2. INVEGA [Suspect]
     Indication: SCHIZOPHRENIA
     Route: 048
     Dates: start: 20131030, end: 20131105
  3. INVEGA [Suspect]
     Indication: SCHIZOPHRENIA
     Route: 048
     Dates: start: 20121128, end: 20130127
  4. INVEGA [Suspect]
     Indication: SCHIZOPHRENIA
     Route: 048
     Dates: start: 20130128, end: 2013
  5. INVEGA [Suspect]
     Indication: SCHIZOPHRENIA
     Route: 048
     Dates: start: 2013, end: 20131029
  6. RISPERDAL [Suspect]
     Indication: SCHIZOPHRENIA
     Route: 048
  7. MYSLEE [Concomitant]
     Route: 048
  8. SILECE [Concomitant]
     Route: 048
  9. WYPAX [Concomitant]
     Route: 048
  10. SELENICA-R [Concomitant]
     Route: 048
  11. LOXONIN [Concomitant]
     Route: 048
  12. AKINETON [Concomitant]
     Route: 048
  13. SEROQUEL [Concomitant]
     Indication: SCHIZOPHRENIA
     Route: 048
  14. LODOPIN [Concomitant]
     Route: 048
  15. LEVOMEPROMAZINE MALEATE [Concomitant]
     Indication: SCHIZOPHRENIA
     Route: 048
  16. LONASEN [Concomitant]
     Indication: SCHIZOPHRENIA
     Route: 048
  17. ALOSENN [Concomitant]
     Route: 048
  18. ABILIFY [Concomitant]
     Route: 048
     Dates: start: 20131030
  19. ABILIFY [Concomitant]
     Route: 048
     Dates: end: 20131029

REACTIONS (3)
  - Schizophrenia [Unknown]
  - Treatment noncompliance [Unknown]
  - Hyperprolactinaemia [Recovered/Resolved]
